FAERS Safety Report 11178203 (Version 1)
Quarter: 2015Q2

REPORT INFORMATION
  Report Type: Spontaneous
  Country: CH (occurrence: CH)
  Receive Date: 20150610
  Receipt Date: 20150610
  Transmission Date: 20150821
  Serious: Yes (Other)
  Sender: FDA-Public Use
  Company Number: CH-BAUSCH-BL-2015-014749

PATIENT
  Age: 69 Year
  Sex: Male

DRUGS (4)
  1. DOCETAXEL. [Suspect]
     Active Substance: DOCETAXEL
     Indication: SEBACEOUS CARCINOMA
     Route: 065
  2. CAPECITABINE. [Suspect]
     Active Substance: CAPECITABINE
     Indication: SEBACEOUS CARCINOMA
     Route: 065
  3. CISPLATIN. [Concomitant]
     Active Substance: CISPLATIN
     Indication: SEBACEOUS CARCINOMA
  4. FLUOROURACIL. [Suspect]
     Active Substance: FLUOROURACIL
     Indication: SEBACEOUS CARCINOMA
     Route: 065

REACTIONS (2)
  - Product use issue [Unknown]
  - Bone marrow failure [Unknown]
